FAERS Safety Report 4496900-7 (Version None)
Quarter: 2004Q4

REPORT INFORMATION
  Report Type: 
  Country: None (occurrence: None)
  Receive Date: 20040928
  Receipt Date: 20040716
  Transmission Date: 20050328
  Serious: No
  Sender: FDA-Public Use
  Company Number: 04P-163-0254071-00

PATIENT
  Age: 65 Year
  Sex: Female
  Weight: 61.2356 kg

DRUGS (11)
  1. HUMIRA [Suspect]
     Indication: RHEUMATOID ARTHRITIS
     Dosage: 40 MG, 1 IN 2 WK, SUBCUTANEOUS  : 40 MG, 1 IN 1 WK, SUBCUTANEOUS
     Route: 058
     Dates: start: 20030801, end: 20040101
  2. HUMIRA [Suspect]
     Indication: RHEUMATOID ARTHRITIS
     Dosage: 40 MG, 1 IN 2 WK, SUBCUTANEOUS  : 40 MG, 1 IN 1 WK, SUBCUTANEOUS
     Route: 058
     Dates: start: 20040101
  3. PREDNISONE [Concomitant]
  4. CELECOXIB [Concomitant]
  5. AMLODIPINE BESYLATE [Concomitant]
  6. ATORVASTATIN CALCIUM [Concomitant]
  7. FOLIC ACID [Concomitant]
  8. METOPROLOL SUCCINATE [Concomitant]
  9. QUINAPRIL HYDROCHLORIDE [Concomitant]
  10. LORAZEPAM [Concomitant]
  11. AMITRIPTYLINE HCL [Concomitant]

REACTIONS (6)
  - COUGH [None]
  - DYSPNOEA [None]
  - HYPERHIDROSIS [None]
  - RASH GENERALISED [None]
  - THROAT TIGHTNESS [None]
  - VOMITING [None]
